FAERS Safety Report 12670403 (Version 1)
Quarter: 2016Q3

REPORT INFORMATION
  Report Type: Other
  Country: DK (occurrence: DK)
  Receive Date: 20160822
  Receipt Date: 20160822
  Transmission Date: 20161109
  Serious: Yes (Death)
  Sender: FDA-Public Use
  Company Number: DK-JUBILANT GENERICS LIMITED-1056563

PATIENT
  Age: 36 Year
  Sex: Male

DRUGS (3)
  1. ARIPIRAZOLE [Suspect]
     Active Substance: ARIPIPRAZOLE
  2. MIRTAZAPINE. [Suspect]
     Active Substance: MIRTAZAPINE
  3. OLANZAPINE. [Suspect]
     Active Substance: OLANZAPINE

REACTIONS (3)
  - Prescribed overdose [Fatal]
  - Arrhythmia [Fatal]
  - Eosinophilic myocarditis [Fatal]

NARRATIVE: CASE EVENT DATE: 20160808
